FAERS Safety Report 4660056-8 (Version None)
Quarter: 2005Q2

REPORT INFORMATION
  Report Type: 
  Country: None (occurrence: None)
  Receive Date: 20050505
  Receipt Date: 20050125
  Transmission Date: 20051028
  Serious: No
  Sender: FDA-Public Use
  Company Number: 2005USFACT00262

PATIENT
  Age: 43 Year
  Sex: Female

DRUGS (3)
  1. FACTIVE [Suspect]
     Indication: RESPIRATORY TRACT INFECTION BACTERIAL
     Dosage: 320.00 MG, QD, ORAL
     Route: 048
     Dates: start: 20050117, end: 20050123
  2. LOTREL [Concomitant]
  3. CLONIDINE [Concomitant]

REACTIONS (1)
  - RASH MACULAR [None]
